FAERS Safety Report 13633997 (Version 1)
Quarter: 2017Q2

REPORT INFORMATION
  Report Type: Report from Study
  Country: FR (occurrence: FR)
  Receive Date: 20170609
  Receipt Date: 20170609
  Transmission Date: 20170830
  Serious: Yes (Hospitalization)
  Sender: FDA-Public Use
  Company Number: FR-ACCORD-052333

PATIENT
  Age: 40 Year
  Sex: Female

DRUGS (2)
  1. CISPLATIN. [Suspect]
     Active Substance: CISPLATIN
     Indication: THYMOMA
     Dosage: 50 MG/M^2 (MAXIMUM DOSE OF 100 MG)
  2. MMC, KYOWA [Suspect]
     Active Substance: MITOMYCIN
     Indication: THYMOMA
     Dosage: 25 MG/M^2 (MAXIMUM DOSE OF 60 MG)

REACTIONS (3)
  - Off label use [Unknown]
  - Bone marrow failure [Recovered/Resolved]
  - Arrhythmia [Unknown]
